FAERS Safety Report 21968403 (Version 3)
Quarter: 2023Q1

REPORT INFORMATION
  Report Type: Report from Study
  Country: IL (occurrence: IL)
  Receive Date: 20230208
  Receipt Date: 20230221
  Transmission Date: 20230417
  Serious: Yes (Death, Hospitalization, Other)
  Sender: FDA-Public Use
  Company Number: IL-ABBVIE-4265426

PATIENT
  Age: 69 Year
  Sex: Male

DRUGS (2)
  1. CARBIDOPA\LEVODOPA [Suspect]
     Active Substance: CARBIDOPA\LEVODOPA
     Indication: Parkinson^s disease
     Route: 050
     Dates: start: 20201109
  2. CARBIDOPA\LEVODOPA [Suspect]
     Active Substance: CARBIDOPA\LEVODOPA
     Dosage: MORNING DOSAGE(ML)  16.0, CONTINUOUS DOSAGE (ML/H)  3.5, EXTRA DOSAGE (ML)  2.5
     Route: 050

REACTIONS (13)
  - Parkinson^s disease [Fatal]
  - Hallucination [Not Recovered/Not Resolved]
  - Pain [Unknown]
  - Apathy [Unknown]
  - Device issue [Recovered/Resolved]
  - Fat embolism [Not Recovered/Not Resolved]
  - Contusion [Unknown]
  - Fall [Recovering/Resolving]
  - Femur fracture [Unknown]
  - Fall [Unknown]
  - Ileus paralytic [Not Recovered/Not Resolved]
  - Loss of consciousness [Not Recovered/Not Resolved]
  - Lower limb fracture [Unknown]

NARRATIVE: CASE EVENT DATE: 20230101
